FAERS Safety Report 7233385-1 (Version None)
Quarter: 2011Q1

REPORT INFORMATION
  Report Type: 
  Country: None (occurrence: None)
  Receive Date: 20110119
  Receipt Date: 20110107
  Transmission Date: 20110831
  Serious: Yes (Other)
  Sender: FDA-Public Use
  Company Number: US-ROCHE-753453

PATIENT
  Sex: Female

DRUGS (6)
  1. LEVOTHYROXINE [Concomitant]
  2. AVASTIN [Suspect]
     Route: 031
     Dates: start: 20101220, end: 20101221
  3. LISINOPRIL [Concomitant]
  4. CARVEDILOL [Concomitant]
  5. SIMVASTATIN [Concomitant]
  6. FUROSEMIDE [Concomitant]

REACTIONS (2)
  - PSEUDOENDOPHTHALMITIS [None]
  - PRODUCT QUALITY ISSUE [None]
